FAERS Safety Report 6734635-8 (Version None)
Quarter: 2010Q2

REPORT INFORMATION
  Report Type: 
  Country: None (occurrence: None)
  Receive Date: 20100519
  Receipt Date: 20100507
  Transmission Date: 20101027
  Serious: Yes (Other)
  Sender: FDA-Public Use
  Company Number: 8052855

PATIENT
  Sex: Male
  Weight: 23 kg

DRUGS (2)
  1. KEPPRA [Suspect]
     Indication: CONVULSION
     Dosage: 250 MG QID
     Dates: start: 20090914
  2. TRILEPTAL [Suspect]
     Indication: CONVULSION
     Dosage: 5 ML BID
     Dates: start: 20090901

REACTIONS (5)
  - ABDOMINAL PAIN [None]
  - NEUTROPENIA [None]
  - PYREXIA [None]
  - SOMNOLENCE [None]
  - THROMBOCYTOPENIA [None]
